FAERS Safety Report 8614117-9 (Version None)
Quarter: 2012Q3

REPORT INFORMATION
  Report Type: 
  Country: None (occurrence: None)
  Receive Date: 20120823
  Receipt Date: 20120815
  Transmission Date: 20120928
  Serious: Yes (Hospitalization)
  Sender: FDA-Public Use
  Company Number: US-BAYER-2012-037955

PATIENT
  Age: 48 Year
  Sex: Female

DRUGS (11)
  1. YASMIN [Suspect]
     Indication: CONTRACEPTION
     Dosage: UNK
     Dates: start: 20030801, end: 20051129
  2. QVAR 40 [Concomitant]
     Indication: ASTHMA
  3. AMBIEN [Concomitant]
  4. ALLEGRA [Concomitant]
     Indication: MULTIPLE ALLERGIES
  5. FLUTICASONE PROPIONATE/SALMETEROL [Concomitant]
     Indication: ASTHMA
  6. YASMIN [Suspect]
     Indication: DYSMENORRHOEA
  7. SINGULAIR [Concomitant]
     Indication: MULTIPLE ALLERGIES
  8. YASMIN [Suspect]
     Indication: MENORRHAGIA
  9. NEXIUM [Concomitant]
     Indication: GASTROOESOPHAGEAL REFLUX DISEASE
  10. AVELOX [Concomitant]
     Indication: PNEUMONIA
     Dosage: UNK
     Dates: start: 20051122
  11. XOPENEX [Concomitant]

REACTIONS (8)
  - NERVOUSNESS [None]
  - PULMONARY EMBOLISM [None]
  - EMOTIONAL DISTRESS [None]
  - DEPRESSION [None]
  - FEAR OF DEATH [None]
  - INJURY [None]
  - BACK PAIN [None]
  - ANXIETY [None]
